FAERS Safety Report 4776467-6 (Version None)
Quarter: 2005Q3

REPORT INFORMATION
  Report Type: 
  Country: None (occurrence: None)
  Receive Date: 20050922
  Receipt Date: 20050607
  Transmission Date: 20060218
  Serious: Yes (Death, Other)
  Sender: FDA-Public Use
  Company Number: US-MERCK-0506USA01433

PATIENT
  Age: 70 Year
  Sex: Male
  Weight: 114 kg

DRUGS (9)
  1. VIOXX [Suspect]
     Indication: ARTHRITIS
     Route: 048
     Dates: start: 20020101
  2. VIOXX [Suspect]
     Route: 048
     Dates: start: 20030211, end: 20030201
  3. VIOXX [Suspect]
     Route: 048
     Dates: start: 20030201, end: 20030512
  4. INDERAL [Concomitant]
     Indication: HYPERTENSION
     Route: 065
     Dates: start: 20020906, end: 20030512
  5. INDERAL [Concomitant]
     Indication: MIGRAINE
     Route: 065
     Dates: start: 20020906, end: 20030512
  6. UNIVASC [Concomitant]
     Indication: HYPERTENSION
     Route: 065
     Dates: end: 20030512
  7. PREVACID [Concomitant]
     Indication: GASTROOESOPHAGEAL REFLUX DISEASE
     Route: 065
     Dates: end: 20030512
  8. HYTRIN [Concomitant]
     Indication: HYPERTENSION
     Route: 065
     Dates: end: 20030512
  9. ZOCOR [Concomitant]
     Indication: HYPERCHOLESTEROLAEMIA
     Route: 048
     Dates: end: 20030512

REACTIONS (7)
  - BACK INJURY [None]
  - BLOOD URIC ACID INCREASED [None]
  - CARDIAC ARREST [None]
  - HYPERTENSION [None]
  - LETHARGY [None]
  - MUSCLE SPASMS [None]
  - MYOCARDIAL INFARCTION [None]
